FAERS Safety Report 9289336 (Version 1)
Quarter: 2013Q2

REPORT INFORMATION
  Report Type: Spontaneous
  Country: DE (occurrence: DE)
  Receive Date: 20130514
  Receipt Date: 20130514
  Transmission Date: 20140414
  Serious: Yes (Hospitalization, Other)
  Sender: FDA-Public Use
  Company Number: DE-PFIZER INC-2013087197

PATIENT
  Age: 62 Year
  Sex: Male

DRUGS (2)
  1. SERTRALINE HCL [Suspect]
     Indication: DEPRESSION
     Dosage: 50 MG, 1X/DAY
     Dates: start: 201301
  2. SERTRALINE HCL [Suspect]
     Dosage: 100 MG, 1X/DAY

REACTIONS (4)
  - Renal cell carcinoma [Unknown]
  - Renal mass [Unknown]
  - Nephrolithiasis [Unknown]
  - Drug ineffective [Unknown]
